FAERS Safety Report 11727240 (Version 3)
Quarter: 2015Q4

REPORT INFORMATION
  Report Type: Spontaneous
  Country: US (occurrence: US)
  Receive Date: 20151112
  Receipt Date: 20151201
  Transmission Date: 20160304
  Serious: Yes (Other)
  Sender: FDA-Public Use
  Company Number: US-DRREDDYS-USA/USA/15/0053909

PATIENT
  Age: 27 Year
  Sex: Female

DRUGS (1)
  1. ZENATANE [Suspect]
     Active Substance: ISOTRETINOIN
     Indication: PRODUCT USED FOR UNKNOWN INDICATION
     Route: 065
     Dates: start: 20150625, end: 20151029

REACTIONS (2)
  - Exposure during pregnancy [Unknown]
  - Ectopic pregnancy [Unknown]

NARRATIVE: CASE EVENT DATE: 201511
